FAERS Safety Report 8593648-4 (Version None)
Quarter: 2012Q3

REPORT INFORMATION
  Report Type: 
  Country: None (occurrence: None)
  Receive Date: 20120814
  Receipt Date: 20120808
  Transmission Date: 20120928
  Serious: Yes (Other)
  Sender: FDA-Public Use
  Company Number: JP-VERTEX PHARMACEUTICALS INC.-AE-2012-006225

PATIENT
  Age: 60 Year
  Sex: Female

DRUGS (24)
  1. PEG-INTRON [Concomitant]
     Indication: HEPATITIS C
     Route: 058
     Dates: start: 20120308, end: 20120329
  2. PREDNISOLONE [Concomitant]
     Route: 048
     Dates: end: 20120406
  3. SELBEX [Concomitant]
     Route: 048
     Dates: start: 20120308, end: 20120425
  4. PREDNISOLONE [Concomitant]
     Route: 048
     Dates: start: 20120315, end: 20120321
  5. PREDNISOLONE [Concomitant]
     Route: 048
     Dates: start: 20120323, end: 20120329
  6. ALLOPURINOL [Concomitant]
     Route: 048
     Dates: start: 20120314, end: 20120329
  7. REBETOL [Concomitant]
     Route: 048
     Dates: start: 20120405
  8. PREDNISOLONE [Concomitant]
     Route: 048
     Dates: start: 20120406, end: 20120425
  9. NERIPROCT SUPPOS. [Concomitant]
     Route: 054
     Dates: start: 20120412, end: 20120425
  10. TELAVIC [Suspect]
     Indication: HEPATITIS C
     Route: 048
     Dates: start: 20120308
  11. DOGMATYL [Concomitant]
     Route: 048
     Dates: start: 20120308, end: 20120314
  12. PREDNISOLONE [Concomitant]
     Route: 048
     Dates: start: 20120329, end: 20120406
  13. REBETOL [Concomitant]
     Indication: HEPATITIS C
     Route: 048
     Dates: start: 20120308
  14. PREDNISOLONE [Concomitant]
     Route: 048
     Dates: start: 20120311
  15. DEPAS [Concomitant]
     Route: 048
     Dates: start: 20120329, end: 20120425
  16. PREDNISOLONE [Concomitant]
     Dates: start: 20120406
  17. PREDNISOLONE [Concomitant]
     Route: 048
     Dates: start: 20120312, end: 20120314
  18. PEG-INTRON [Concomitant]
     Route: 058
     Dates: start: 20120406
  19. LOXONIN [Concomitant]
     Route: 048
     Dates: start: 20120308
  20. NORVASC [Concomitant]
     Route: 048
     Dates: start: 20120329, end: 20120426
  21. ZYRTEC [Concomitant]
     Route: 048
     Dates: start: 20120308, end: 20120314
  22. ZOLPIDEM [Concomitant]
     Route: 048
     Dates: start: 20120315, end: 20120425
  23. TOPSYM [Concomitant]
     Route: 061
     Dates: start: 20120308
  24. CLARITIN [Concomitant]
     Route: 048
     Dates: start: 20120315, end: 20120425

REACTIONS (9)
  - MANIA [None]
  - INSOMNIA [None]
  - RASH [None]
  - HAEMORRHOIDS [None]
  - BLOOD URIC ACID INCREASED [None]
  - PRURITUS [None]
  - HAEMOGLOBIN DECREASED [None]
  - BLOOD CREATININE INCREASED [None]
  - HYPERTENSION [None]
